FAERS Safety Report 7563710-3 (Version None)
Quarter: 2011Q2

REPORT INFORMATION
  Report Type: 
  Country: None (occurrence: None)
  Receive Date: 20110622
  Receipt Date: 20110610
  Transmission Date: 20111010
  Serious: Yes (Other)
  Sender: FDA-Public Use
  Company Number: PHHY2011RO51033

PATIENT
  Age: 32 Year
  Sex: Female

DRUGS (6)
  1. SPIRONOLACTONE [Suspect]
     Indication: HEPATO-LENTICULAR DEGENERATION
     Dosage: 25 MG EVERY 4 HOURS
  2. FUROSEMIDE [Suspect]
     Indication: HEPATO-LENTICULAR DEGENERATION
     Dosage: FOUR TIMES A DAY
  3. OMEPRAZOLE [Suspect]
     Indication: HEPATO-LENTICULAR DEGENERATION
     Dosage: 0.25 G, BID
  4. LACTULOSE [Suspect]
     Indication: HEPATO-LENTICULAR DEGENERATION
     Dosage: 10 ML EVERY DAY
  5. PENICILLAMINE [Suspect]
     Indication: HEPATO-LENTICULAR DEGENERATION
     Dosage: 0.25 G FOUR TIMES A DAY
  6. URSODIOL [Suspect]
     Indication: HEPATO-LENTICULAR DEGENERATION
     Dosage: 250 MG, TID

REACTIONS (12)
  - PERIODONTITIS [None]
  - INFLAMMATION [None]
  - EXTRAVASATION BLOOD [None]
  - DYSPHAGIA [None]
  - MASTICATION DISORDER [None]
  - VASODILATATION [None]
  - HYPERPLASIA [None]
  - PAPULE [None]
  - GINGIVAL RECESSION [None]
  - GINGIVAL BLEEDING [None]
  - GINGIVAL SWELLING [None]
  - GINGIVITIS [None]
